FAERS Safety Report 13898827 (Version 2)
Quarter: 2017Q4

REPORT INFORMATION
  Report Type: Spontaneous
  Country: US (occurrence: US)
  Receive Date: 20170824
  Receipt Date: 20171006
  Transmission Date: 20180320
  Serious: Yes (Hospitalization, Other)
  Sender: FDA-Public Use
  Company Number: US-GLAXOSMITHKLINE-US2017129755

PATIENT
  Age: 74 Year
  Sex: Female

DRUGS (6)
  1. AMBIEN [Concomitant]
     Active Substance: ZOLPIDEM TARTRATE
  2. ZYRTEC [Concomitant]
     Active Substance: CETIRIZINE HYDROCHLORIDE
  3. TYLENOL [Concomitant]
     Active Substance: ACETAMINOPHEN
  4. LAMICTAL [Suspect]
     Active Substance: LAMOTRIGINE
     Indication: SEIZURE
     Dosage: 150 MG, QD
     Route: 048
     Dates: start: 1996
  5. ADVIL [Concomitant]
     Active Substance: IBUPROFEN
  6. LAMOTRIGINE. [Suspect]
     Active Substance: LAMOTRIGINE
     Indication: SEIZURE
     Dosage: UNK
     Dates: end: 1996

REACTIONS (16)
  - Generalised tonic-clonic seizure [Unknown]
  - Poisoning [Unknown]
  - Peripheral swelling [Not Recovered/Not Resolved]
  - Product quality issue [Unknown]
  - Arthralgia [Not Recovered/Not Resolved]
  - Drug ineffective [Unknown]
  - Knee arthroplasty [Recovered/Resolved]
  - Gait disturbance [Not Recovered/Not Resolved]
  - Mood altered [Not Recovered/Not Resolved]
  - Ligament rupture [Unknown]
  - Paraesthesia [Not Recovered/Not Resolved]
  - Ill-defined disorder [Unknown]
  - Pain [Not Recovered/Not Resolved]
  - Joint swelling [Not Recovered/Not Resolved]
  - Gastritis [Not Recovered/Not Resolved]
  - Weight increased [Not Recovered/Not Resolved]

NARRATIVE: CASE EVENT DATE: 1996
